FAERS Safety Report 5947725-4 (Version None)
Quarter: 2008Q4

REPORT INFORMATION
  Report Type: 
  Country: None (occurrence: None)
  Receive Date: 20081111
  Receipt Date: 20081030
  Transmission Date: 20090506
  Serious: Yes (Death, Life-Threatening, Other)
  Sender: FDA-Public Use
  Company Number: ZA-JNJFOC-20081100555

PATIENT
  Age: 55 Year
  Sex: Female
  Weight: 102 kg

DRUGS (2)
  1. REVELLEX [Suspect]
     Route: 042
  2. REVELLEX [Suspect]
     Indication: RHEUMATOID ARTHRITIS
     Route: 042

REACTIONS (2)
  - DEATH [None]
  - HIP ARTHROPLASTY [None]
